FAERS Safety Report 10180307 (Version 1)
Quarter: 2014Q2

REPORT INFORMATION
  Report Type: Spontaneous
  Country: US (occurrence: US)
  Receive Date: 20140519
  Receipt Date: 20140519
  Transmission Date: 20141212
  Serious: No
  Sender: FDA-Public Use
  Company Number: US-AMGEN INC.-USASP2013083059

PATIENT
  Age: 82 Year
  Sex: Female

DRUGS (21)
  1. PROLIA [Suspect]
     Indication: OSTEOPOROSIS POSTMENOPAUSAL
     Dosage: UNK
     Route: 065
     Dates: start: 201211
  2. SYNTHROID [Concomitant]
     Route: 065
  3. NITROSTAT [Concomitant]
     Dosage: UNK UNK, AS NECESSARY
     Route: 065
  4. POTASSIUM [Concomitant]
     Dosage: UNK UNK, AS NECESSARY
     Route: 065
  5. FUROSEMIDE [Concomitant]
     Dosage: UNK UNK, AS NECESSARY
     Route: 065
  6. COREG [Concomitant]
     Route: 065
  7. AMLODIPINE [Concomitant]
     Route: 065
  8. ALLOPURINOL [Concomitant]
     Route: 065
  9. MELOXICAM [Concomitant]
     Route: 065
  10. CILOSTAZOL [Concomitant]
     Route: 065
  11. PRAVASTATIN [Concomitant]
  12. GABAPENTIN [Concomitant]
     Route: 065
  13. PLAVIX [Concomitant]
     Route: 065
  14. BUSPIRONE [Concomitant]
     Route: 065
  15. PRAZOSIN [Concomitant]
     Route: 065
  16. TEMAZEPAM [Concomitant]
     Dosage: UNK UNK, AS NECESSARY
     Route: 065
  17. TRAMADOL [Concomitant]
     Dosage: UNK UNK, AS NECESSARY
  18. QUINAPRIL [Concomitant]
     Route: 065
  19. BABY ASPIRIN [Concomitant]
     Route: 065
  20. OMEPRAZOLE [Concomitant]
     Indication: GASTROOESOPHAGEAL REFLUX DISEASE
     Route: 065
  21. PANTOPRAZOLE [Concomitant]
     Route: 065

REACTIONS (3)
  - Nausea [Not Recovered/Not Resolved]
  - Vomiting [Unknown]
  - Aphagia [Unknown]
